FAERS Safety Report 17747250 (Version 4)
Quarter: 2021Q1

REPORT INFORMATION
  Report Type: Spontaneous
  Country: CA (occurrence: CA)
  Receive Date: 20200505
  Receipt Date: 20210325
  Transmission Date: 20210419
  Serious: Yes (Hospitalization)
  Sender: FDA-Public Use
  Company Number: CA-BIOMARINAP-CA-2020-129911

PATIENT
  Age: 13 Week
  Sex: Female
  Weight: 4 kg

DRUGS (5)
  1. URSODIOL. [Concomitant]
     Active Substance: URSODIOL
     Indication: PRODUCT USED FOR UNKNOWN INDICATION
  2. LANSOPRAZOLE. [Concomitant]
     Active Substance: LANSOPRAZOLE
     Indication: PRODUCT USED FOR UNKNOWN INDICATION
  3. VITAMIN D [ERGOCALCIFEROL] [Concomitant]
     Active Substance: ERGOCALCIFEROL
     Indication: PRODUCT USED FOR UNKNOWN INDICATION
     Dosage: 400 INTERNATIONAL UNIT, QD
     Route: 048
  4. VIMIZIM [Suspect]
     Active Substance: ELOSULFASE ALFA
     Indication: MUCOPOLYSACCHARIDOSIS IV
     Dosage: 10 MILLIGRAM, QW
     Route: 041
     Dates: start: 20200403, end: 202004
  5. ENALAPRIL [Concomitant]
     Active Substance: ENALAPRIL
     Indication: PRODUCT USED FOR UNKNOWN INDICATION

REACTIONS (10)
  - Hypertension [Unknown]
  - Hypotonia [Unknown]
  - Ventricular hypertrophy [Unknown]
  - Dyspnoea [Not Recovered/Not Resolved]
  - Feeding disorder [Unknown]
  - Product dose omission issue [Unknown]
  - Aspiration [Unknown]
  - Dysphagia [Unknown]
  - Laryngomalacia [Unknown]
  - Reflux laryngitis [Unknown]

NARRATIVE: CASE EVENT DATE: 202004
